FAERS Safety Report 19358087 (Version 3)
Quarter: 2023Q1

REPORT INFORMATION
  Report Type: Report from Study
  Country: BR (occurrence: BR)
  Receive Date: 20210601
  Receipt Date: 20230209
  Transmission Date: 20230418
  Serious: Yes (Hospitalization)
  Sender: FDA-Public Use
  Company Number: BR-BIOGEN-2019BI00716240

PATIENT
  Sex: Female
  Weight: 69 kg

DRUGS (6)
  1. TYSABRI [Suspect]
     Active Substance: NATALIZUMAB
     Indication: Multiple sclerosis
     Route: 050
     Dates: start: 20160114, end: 202002
  2. TYSABRI [Suspect]
     Active Substance: NATALIZUMAB
     Route: 050
     Dates: start: 20190513
  3. TYSABRI [Suspect]
     Active Substance: NATALIZUMAB
     Route: 050
     Dates: start: 20160114, end: 202103
  4. CLONAZEPAM [Concomitant]
     Active Substance: CLONAZEPAM
     Indication: Stress
     Route: 050
     Dates: start: 2015
  5. CLONAZEPAM [Concomitant]
     Active Substance: CLONAZEPAM
     Route: 050
  6. ATENOLOL [Concomitant]
     Active Substance: ATENOLOL
     Indication: Blood pressure abnormal
     Route: 050
     Dates: start: 2018

REACTIONS (9)
  - Urinary tract infection [Recovered/Resolved]
  - Bacterial infection [Recovered/Resolved]
  - Blood pressure increased [Not Recovered/Not Resolved]
  - Decreased immune responsiveness [Unknown]
  - Stress [Unknown]
  - Klebsiella infection [Unknown]
  - Staphylococcal infection [Unknown]
  - Blood pressure fluctuation [Not Recovered/Not Resolved]
  - Dizziness [Recovered/Resolved]

NARRATIVE: CASE EVENT DATE: 20180101
